FAERS Safety Report 15125443 (Version 1)
Quarter: 2018Q3

REPORT INFORMATION
  Report Type: Spontaneous
  Country: US (occurrence: US)
  Receive Date: 20180613
  Receipt Date: 20180613
  Transmission Date: 20181010
  Serious: No
  Sender: FDA-Public Use
  Company Number: None

PATIENT
  Age: 79 Year
  Sex: Female

DRUGS (1)
  1. LETAIRIS [Suspect]
     Active Substance: AMBRISENTAN
     Indication: PULMONARY ARTERIAL HYPERTENSION
     Route: 048
     Dates: start: 20160329

REACTIONS (10)
  - Fall [None]
  - Wrist fracture [None]
  - Skin abrasion [None]
  - Arthralgia [None]
  - Pain in extremity [None]
  - Facial pain [None]
  - Breast pain [None]
  - Contusion [None]
  - Musculoskeletal chest pain [None]
  - Pain [None]

NARRATIVE: CASE EVENT DATE: 20180612
